FAERS Safety Report 13351476 (Version 8)
Quarter: 2017Q4

REPORT INFORMATION
  Report Type: Spontaneous
  Country: JP (occurrence: JP)
  Receive Date: 20170320
  Receipt Date: 20171101
  Transmission Date: 20180320
  Serious: Yes (Hospitalization)
  Sender: FDA-Public Use
  Company Number: PHJP2017JP009194

PATIENT
  Age: 59 Year
  Sex: Female
  Weight: 39.4 kg

DRUGS (7)
  1. CELECOXIB. [Concomitant]
     Active Substance: CELECOXIB
     Indication: ARTHRALGIA
     Dosage: 200 MG, BID
     Route: 048
     Dates: start: 20160106, end: 20160707
  2. NIZATIDINE. [Concomitant]
     Active Substance: NIZATIDINE
     Indication: CHRONIC GASTRITIS
     Dosage: 150 MG, QD
     Route: 048
     Dates: start: 20151104
  3. PREDNISOLON [Concomitant]
     Active Substance: PREDNISOLONE
     Dosage: UNK (GRADUALLY REDUCED)
     Route: 065
     Dates: end: 20140730
  4. TOCOPHEROL [Concomitant]
     Active Substance: TOCOPHEROL
     Indication: PERIPHERAL CIRCULATORY FAILURE
     Dosage: 100 MG, TID
     Route: 048
     Dates: start: 20131120
  5. NEORAL [Suspect]
     Active Substance: CYCLOSPORINE
     Dosage: 50 MG, BID
     Route: 048
     Dates: start: 20130225, end: 20160707
  6. NEORAL [Suspect]
     Active Substance: CYCLOSPORINE
     Indication: MYOSITIS
     Dosage: 150 MG, UNK
     Route: 048
     Dates: start: 20121120, end: 20130224
  7. PREDNISOLON [Concomitant]
     Active Substance: PREDNISOLONE
     Indication: MYOSITIS
     Dosage: 30 MG, UNK
     Route: 065
     Dates: start: 20121120

REACTIONS (17)
  - N-terminal prohormone brain natriuretic peptide increased [Recovering/Resolving]
  - Troponin I increased [Recovering/Resolving]
  - Acute kidney injury [Recovering/Resolving]
  - Platelet count decreased [Recovered/Resolved]
  - Weight decreased [Recovered/Resolved]
  - Thrombotic microangiopathy [Recovered/Resolved]
  - Dyspnoea exertional [Unknown]
  - Atrial fibrillation [Recovered/Resolved]
  - Blood pressure increased [Unknown]
  - Palpitations [Unknown]
  - Anaemia [Unknown]
  - Proteinuria [Recovering/Resolving]
  - Haematuria [Recovering/Resolving]
  - Ventricular hypokinesia [Recovered/Resolved]
  - Decreased appetite [Unknown]
  - Haptoglobin decreased [Unknown]
  - Product use in unapproved indication [Unknown]

NARRATIVE: CASE EVENT DATE: 201605
